FAERS Safety Report 16636292 (Version 3)
Quarter: 2019Q3

REPORT INFORMATION
  Report Type: Spontaneous
  Country: US (occurrence: US)
  Receive Date: 20190726
  Receipt Date: 20190909
  Transmission Date: 20191004
  Serious: No
  Sender: FDA-Public Use
  Company Number: US-ELI_LILLY_AND_COMPANY-US201907007073

PATIENT
  Sex: Female

DRUGS (2)
  1. AMITREX [Concomitant]
     Active Substance: AMISULPRIDE
     Indication: PRODUCT USED FOR UNKNOWN INDICATION
  2. EMGALITY [Suspect]
     Active Substance: GALCANEZUMAB-GNLM
     Indication: PRODUCT USED FOR UNKNOWN INDICATION
     Dosage: 120 MG, UNKNOWN
     Route: 058

REACTIONS (6)
  - Syphilis [Unknown]
  - Joint swelling [Unknown]
  - Pruritus [Unknown]
  - Product dose omission [Not Recovered/Not Resolved]
  - Injection site haemorrhage [Unknown]
  - Migraine [Not Recovered/Not Resolved]
